FAERS Safety Report 8830721 (Version 3)
Quarter: 2013Q1

REPORT INFORMATION
  Report Type: Spontaneous
  Country: US (occurrence: US)
  Receive Date: 20121009
  Receipt Date: 20130114
  Transmission Date: 20140127
  Serious: Yes (Hospitalization)
  Sender: FDA-Public Use
  Company Number: US-BAYER-2012-103384

PATIENT
  Age: 23 Year
  Sex: Female
  Weight: 125.17 kg

DRUGS (4)
  1. YAZ [Suspect]
     Indication: CONTRACEPTION
     Dosage: UNK
     Dates: start: 20070522, end: 2008
  2. YAZ [Suspect]
     Indication: MENSTRUATION IRREGULAR
  3. YAZ [Suspect]
     Indication: DYSMENORRHOEA
  4. IBUPROFEN [Concomitant]
     Dosage: UNK UNK, PRN

REACTIONS (10)
  - Thrombosis [None]
  - Deep vein thrombosis [Recovered/Resolved]
  - Thrombophlebitis superficial [Recovered/Resolved]
  - Emotional distress [None]
  - Anhedonia [None]
  - Pain [None]
  - Injury [None]
  - Anxiety [None]
  - General physical health deterioration [None]
  - Pain in extremity [None]
